FAERS Safety Report 14636654 (Version 1)
Quarter: 2018Q1

REPORT INFORMATION
  Report Type: Spontaneous
  Country: FR (occurrence: FR)
  Receive Date: 20180314
  Receipt Date: 20180314
  Transmission Date: 20180509
  Serious: Yes (Hospitalization)
  Sender: FDA-Public Use
  Company Number: FR-TEVA-2018-FR-867321

PATIENT
  Age: 67 Year
  Sex: Female

DRUGS (11)
  1. ATOVAQUONE. [Concomitant]
     Active Substance: ATOVAQUONE
  2. FORMOTEROL [Concomitant]
     Active Substance: FORMOTEROL
     Route: 055
  3. TAMOXIFEN [Concomitant]
     Active Substance: TAMOXIFEN
     Route: 048
  4. DIFFU K [Concomitant]
     Active Substance: POTASSIUM CHLORIDE
  5. CELESTAMINE [Suspect]
     Active Substance: BETAMETHASONE\DEXCHLORPHENIRAMINE MALEATE
     Indication: PRURITUS
     Route: 048
  6. PREDNISONE. [Concomitant]
     Active Substance: PREDNISONE
  7. TRACLEER [Concomitant]
     Active Substance: BOSENTAN
     Route: 048
  8. GENTALLINE UNILABO [Suspect]
     Active Substance: GENTAMICIN SULFATE
     Indication: GASTROINTESTINAL INFECTION
  9. FUROSEMIDE. [Concomitant]
     Active Substance: FUROSEMIDE
  10. AZITHROMYCIN ANHYDROUS. [Suspect]
     Active Substance: AZITHROMYCIN ANHYDROUS
     Indication: GASTROINTESTINAL INFECTION
     Route: 048
  11. INEXIUM 40 MG GASTRO-RESISTANT TABLET [Concomitant]
     Route: 048

REACTIONS (3)
  - Erythema [Recovering/Resolving]
  - Rash macular [Recovering/Resolving]
  - Pruritus [Recovering/Resolving]
